FAERS Safety Report 23153518 (Version 1)
Quarter: 2023Q4

REPORT INFORMATION
  Report Type: Report from Study
  Country: CO (occurrence: CO)
  Receive Date: 20231107
  Receipt Date: 20231107
  Transmission Date: 20240110
  Serious: Yes (Hospitalization)
  Sender: FDA-Public Use
  Company Number: CO-ASTELLAS-2023US032993

PATIENT
  Age: 75 Year
  Sex: Male

DRUGS (1)
  1. TACROLIMUS [Suspect]
     Active Substance: TACROLIMUS
     Indication: Liver transplant
     Dosage: 10 MG, ONCE DAILY (2X5MG CAPSULES EVERY 24 HOURS)
     Route: 048
     Dates: end: 2023

REACTIONS (2)
  - Renal disorder [Recovering/Resolving]
  - Urinary tract infection [Recovering/Resolving]
